FAERS Safety Report 25380592 (Version 2)
Quarter: 2025Q4

REPORT INFORMATION
  Report Type: Spontaneous
  Country: JP (occurrence: JP)
  Receive Date: 20250530
  Receipt Date: 20251117
  Transmission Date: 20260118
  Serious: No
  Sender: IDORSIA PHARMACEUTICALS
  Company Number: JP-IDORSIA-010412-2025-JP

PATIENT
  Age: 8 Decade
  Sex: Male

DRUGS (1)
  1. QUVIVIQ [Suspect]
     Active Substance: DARIDOREXANT
     Indication: Insomnia
     Dosage: UNK
     Route: 048
     Dates: start: 20250404, end: 20250519

REACTIONS (1)
  - Dysphagia [Not Recovered/Not Resolved]

NARRATIVE: CASE EVENT DATE: 20250512
